FAERS Safety Report 4845340-7 (Version None)
Quarter: 2005Q4

REPORT INFORMATION
  Report Type: 
  Country: None (occurrence: None)
  Receive Date: 20051205
  Receipt Date: 20051128
  Transmission Date: 20060501
  Serious: Yes (Other)
  Sender: FDA-Public Use
  Company Number: IT-GLAXOSMITHKLINE-B0402307A

PATIENT
  Age: 16 Year
  Sex: Female

DRUGS (2)
  1. ACYCLOVIR [Suspect]
     Route: 065
  2. CEFTRIAXONE [Suspect]
     Route: 065

REACTIONS (1)
  - RENAL FAILURE [None]
